FAERS Safety Report 6543243-3 (Version None)
Quarter: 2010Q1

REPORT INFORMATION
  Report Type: 
  Country: None (occurrence: None)
  Receive Date: 20100120
  Receipt Date: 20100108
  Transmission Date: 20100710
  Serious: Yes (Hospitalization)
  Sender: FDA-Public Use
  Company Number: CN-JNJFOC-20100102202

PATIENT
  Age: 70 Year
  Sex: Male

DRUGS (2)
  1. TYLENOL [Suspect]
     Indication: NASOPHARYNGITIS
     Route: 048
  2. ANTIHYPERTENSIVE [Suspect]
     Indication: HYPERTENSION

REACTIONS (2)
  - DIZZINESS [None]
  - HYPERHIDROSIS [None]
